FAERS Safety Report 9367107 (Version 4)
Quarter: 2018Q2

REPORT INFORMATION
  Report Type: Spontaneous
  Country: US (occurrence: US)
  Receive Date: 20130625
  Receipt Date: 20180426
  Transmission Date: 20180711
  Serious: Yes (Hospitalization, Disabling, Other)
  Sender: FDA-Public Use
  Company Number: US-009507513-1205USA04980

PATIENT
  Sex: Male

DRUGS (3)
  1. ALENDRONATE SODIUM. [Suspect]
     Active Substance: ALENDRONATE SODIUM
     Indication: OSTEOPOROSIS
     Dosage: 70 MG, UNK
     Dates: start: 20080816
  2. FOSAMAX [Suspect]
     Active Substance: ALENDRONATE SODIUM
     Indication: OSTEOPOROSIS
     Dosage: UNK
     Route: 048
     Dates: start: 20060208, end: 200702
  3. FOSAMAX [Suspect]
     Active Substance: ALENDRONATE SODIUM
     Indication: OSTEOPOROSIS
     Dosage: 70 MG, UNK
     Route: 048
     Dates: start: 20060208, end: 200901

REACTIONS (21)
  - Femur fracture [Not Recovered/Not Resolved]
  - Spinal osteoarthritis [Unknown]
  - Scoliosis [Unknown]
  - Vertebroplasty [Unknown]
  - Fall [Unknown]
  - Osteopenia [Unknown]
  - Joint injury [Unknown]
  - Intervertebral disc space narrowing [Unknown]
  - Medical device discomfort [Unknown]
  - Laceration [Unknown]
  - Hypertrophy [Unknown]
  - Spinal cord compression [Not Recovered/Not Resolved]
  - Limb injury [Unknown]
  - Hypertrophy [Unknown]
  - Depression [Unknown]
  - Intramedullary rod insertion [Not Recovered/Not Resolved]
  - Osteoporosis [Not Recovered/Not Resolved]
  - Low turnover osteopathy [Not Recovered/Not Resolved]
  - Vertebroplasty [Unknown]
  - Multiple fractures [Not Recovered/Not Resolved]
  - Osteoarthritis [Unknown]

NARRATIVE: CASE EVENT DATE: 2007
